FAERS Safety Report 13499011 (Version 2)
Quarter: 2017Q2

REPORT INFORMATION
  Report Type: Spontaneous
  Country: US (occurrence: US)
  Receive Date: 20170501
  Receipt Date: 20170523
  Transmission Date: 20170830
  Serious: Yes (Other)
  Sender: FDA-Public Use
  Company Number: US-009507513-1704USA006554

PATIENT
  Age: 56 Year
  Sex: Female

DRUGS (2)
  1. EMEND [Suspect]
     Active Substance: APREPITANT
     Dosage: UNK
     Route: 042
     Dates: start: 20170410, end: 20170410
  2. STERILE DILUENT [Suspect]
     Active Substance: WATER
     Dosage: UNK
     Route: 042
     Dates: start: 20170410

REACTIONS (5)
  - Erythema [Recovered/Resolved]
  - Wheezing [Recovered/Resolved]
  - Abdominal discomfort [Recovered/Resolved]
  - Chest pain [Recovered/Resolved]
  - Dyspnoea [Recovered/Resolved]

NARRATIVE: CASE EVENT DATE: 20170410
